FAERS Safety Report 24673235 (Version 1)
Quarter: 2024Q4

REPORT INFORMATION
  Report Type: Spontaneous
  Country: US (occurrence: US)
  Receive Date: 20241128
  Receipt Date: 20241128
  Transmission Date: 20250115
  Serious: No
  Sender: IBSA INSTITUT BIOCHIMIQUE
  Company Number: US-IBSA PHARMA INC.-2023IBS000781

PATIENT
  Age: 71 Year
  Sex: Female
  Weight: 76.19 kg

DRUGS (3)
  1. TIROSINT [Suspect]
     Active Substance: LEVOTHYROXINE SODIUM
     Indication: Thyroid disorder
     Dosage: 75 MICROGRAM
     Route: 048
  2. TIROSINT [Suspect]
     Active Substance: LEVOTHYROXINE SODIUM
     Dosage: 62.5 MICROGRAM
     Route: 048
  3. LENVIMA [Suspect]
     Active Substance: LENVATINIB
     Indication: Endometrial neoplasm
     Dosage: 10 MILLIGRAM, QD
     Route: 048
     Dates: start: 20230602

REACTIONS (12)
  - Depression [Unknown]
  - Malaise [Unknown]
  - Drug intolerance [Unknown]
  - Asthenia [Unknown]
  - Myalgia [Unknown]
  - Anxiety [Unknown]
  - Muscular weakness [Unknown]
  - Nausea [Unknown]
  - Dizziness [Unknown]
  - Muscle spasms [Unknown]
  - Fatigue [Unknown]
  - Drug ineffective [Unknown]
